FAERS Safety Report 17028387 (Version 1)
Quarter: 2019Q4

REPORT INFORMATION
  Report Type: Spontaneous
  Country: FR (occurrence: FR)
  Receive Date: 20191113
  Receipt Date: 20191113
  Transmission Date: 20200122
  Serious: Yes (Other)
  Sender: FDA-Public Use
  Company Number: FR-SAMSUNG BIOEPIS-SB-2019-32984

PATIENT
  Age: 41 Year
  Sex: Male
  Weight: 93 kg

DRUGS (4)
  1. ESOMEPRAZOLE. [Concomitant]
     Active Substance: ESOMEPRAZOLE MAGNESIUM
     Indication: PRODUCT USED FOR UNKNOWN INDICATION
     Dosage: UNKNOWN
     Route: 048
     Dates: start: 20180405
  2. NAPROXENE [Concomitant]
     Active Substance: NAPROXEN
     Indication: AXIAL SPONDYLOARTHRITIS
     Dosage: CINQ JOURS SUR SEPT (FIVE DAYS OUT OF SEVEN)
     Route: 048
  3. KETOPROFENE [Concomitant]
     Active Substance: KETOPROFEN
     Indication: AXIAL SPONDYLOARTHRITIS
     Route: 048
  4. BENEPALI [Suspect]
     Active Substance: ETANERCEPT
     Indication: AXIAL SPONDYLOARTHRITIS
     Route: 058
     Dates: start: 20181215, end: 20181222

REACTIONS (2)
  - Lymphocytosis [Not Recovered/Not Resolved]
  - Condition aggravated [Not Recovered/Not Resolved]

NARRATIVE: CASE EVENT DATE: 20181226
